FAERS Safety Report 6765071-6 (Version None)
Quarter: 2010Q2

REPORT INFORMATION
  Report Type: 
  Country: None (occurrence: None)
  Receive Date: 20100610
  Receipt Date: 20100521
  Transmission Date: 20101027
  Serious: Yes (Death, Life-Threatening, Hospitalization)
  Sender: FDA-Public Use
  Company Number: FR-GENENTECH-286175

PATIENT
  Sex: Male

DRUGS (7)
  1. RITUXIMAB [Suspect]
     Indication: MANTLE CELL LYMPHOMA
     Dosage: 640 MG, UNK
     Route: 042
     Dates: start: 20090105, end: 20090105
  2. RITUXIMAB [Suspect]
     Dosage: UNK
     Route: 042
     Dates: end: 20090309
  3. RITUXIMAB [Suspect]
     Dosage: 650 MG, UNK
     Route: 042
     Dates: start: 20100222, end: 20100222
  4. FLUDARABINE [Suspect]
     Indication: MANTLE CELL LYMPHOMA
     Dosage: 51 MG, UNK
     Route: 042
     Dates: start: 20090105, end: 20090107
  5. FLUDARABINE [Suspect]
     Dosage: UNK
     Route: 042
     Dates: end: 20090309
  6. ENDOXAN [Suspect]
     Indication: MANTLE CELL LYMPHOMA
     Dosage: 478 MG, UNK
     Route: 042
     Dates: start: 20090105, end: 20090107
  7. ENDOXAN [Suspect]
     Dosage: UNK
     Route: 042
     Dates: end: 20090309

REACTIONS (5)
  - ATRIAL FIBRILLATION [None]
  - CORONARY ARTERY STENOSIS [None]
  - HERPES VIRUS INFECTION [None]
  - PYREXIA [None]
  - RESPIRATORY DISTRESS [None]
